FAERS Safety Report 9105120 (Version 3)
Quarter: 2014Q1

REPORT INFORMATION
  Report Type: Spontaneous
  Country: JP (occurrence: JP)
  Receive Date: 20130220
  Receipt Date: 20140225
  Transmission Date: 20141002
  Serious: Yes (Other)
  Sender: FDA-Public Use
  Company Number: JP-SANOFI-AVENTIS-2013SA014401

PATIENT
  Age: 78 Year
  Sex: Male
  Weight: 60.95 kg

DRUGS (6)
  1. PLAVIX [Suspect]
     Indication: STENT PLACEMENT
     Route: 048
     Dates: start: 20120719, end: 20130104
  2. PLAVIX [Suspect]
     Indication: ACUTE MYOCARDIAL INFARCTION
     Route: 048
     Dates: start: 20120719, end: 20130104
  3. MINOCYCLINE HYDROCHLORIDE [Suspect]
     Indication: ATYPICAL PNEUMONIA
     Route: 065
     Dates: start: 20121214, end: 20121228
  4. BAYASPIRIN [Concomitant]
     Indication: STENT PLACEMENT
     Dates: end: 201301
  5. BAYASPIRIN [Concomitant]
     Indication: STENT PLACEMENT
  6. JANUVIA [Concomitant]
     Indication: DIABETES MELLITUS

REACTIONS (4)
  - Organising pneumonia [Recovering/Resolving]
  - Cough [Recovering/Resolving]
  - C-reactive protein increased [Recovering/Resolving]
  - Eosinophilia [Recovering/Resolving]
